FAERS Safety Report 5959185-8 (Version None)
Quarter: 2008Q4

REPORT INFORMATION
  Report Type: 
  Country: None (occurrence: None)
  Receive Date: 20081120
  Receipt Date: 20080731
  Transmission Date: 20090506
  Serious: Yes (Other)
  Sender: FDA-Public Use
  Company Number: A0729656A

PATIENT
  Age: 37 Year
  Sex: Female
  Weight: 76.4 kg

DRUGS (4)
  1. BUPROPION HYDROCHLORIDE [Suspect]
     Dosage: 150MG TWICE PER DAY
     Route: 048
     Dates: start: 20080501, end: 20080510
  2. MULTI-VITAMIN [Concomitant]
  3. TUMS [Concomitant]
  4. PRILOSEC [Concomitant]
     Dosage: 20MG AS REQUIRED
     Route: 048

REACTIONS (4)
  - PRURITUS [None]
  - SWELLING FACE [None]
  - URTICARIA [None]
  - VERTIGO [None]
